APPROVED DRUG PRODUCT: RIVAROXABAN
Active Ingredient: RIVAROXABAN
Strength: 10MG
Dosage Form/Route: TABLET;ORAL
Application: A213348 | Product #001 | TE Code: AB
Applicant: SUNSHINE LAKE PHARMA CO LTD
Approved: May 14, 2025 | RLD: No | RS: No | Type: RX